FAERS Safety Report 18951752 (Version 3)
Quarter: 2021Q2

REPORT INFORMATION
  Report Type: Spontaneous
  Country: CA (occurrence: CA)
  Receive Date: 20210301
  Receipt Date: 20210625
  Transmission Date: 20210717
  Serious: Yes (Other)
  Sender: FDA-Public Use
  Company Number: CA-CELLTRION INC.-2020CA018689

PATIENT

DRUGS (18)
  1. INFLECTRA [Suspect]
     Active Substance: INFLIXIMAB-DYYB
     Dosage: 5MG/KG AT WEEK 0,2,6 THEN EVERY 8 WEEKS
     Route: 042
     Dates: start: 20210218
  2. MONTELUKAST [Concomitant]
     Active Substance: MONTELUKAST SODIUM
     Dosage: UNK
     Route: 065
  3. METFORMIN [Concomitant]
     Active Substance: METFORMIN HYDROCHLORIDE
     Dosage: UNK
     Route: 048
  4. INFLECTRA [Suspect]
     Active Substance: INFLIXIMAB-DYYB
     Dosage: 5MG/KG AT WEEK 0,2,6 THEN EVERY 8 WEEKS
     Route: 042
     Dates: start: 20200208
  5. VITAMIN D [COLECALCIFEROL] [Concomitant]
     Active Substance: CHOLECALCIFEROL
     Dosage: UNK
     Route: 048
  6. GLYCOZIDE [Concomitant]
     Dosage: UNK
     Route: 065
  7. DILAUDID [Concomitant]
     Active Substance: HYDROMORPHONE HYDROCHLORIDE
     Dosage: UNK
     Route: 048
  8. JANUVIA [Concomitant]
     Active Substance: SITAGLIPTIN PHOSPHATE
     Dosage: UNK
     Route: 065
  9. INFLECTRA [Suspect]
     Active Substance: INFLIXIMAB-DYYB
     Dosage: 5MG/KG AT WEEK 0,2,6 THEN EVERY 8 WEEKS
     Route: 042
     Dates: start: 20201222
  10. INFLECTRA [Suspect]
     Active Substance: INFLIXIMAB-DYYB
     Dosage: 5MG/KG AT WEEK 0,2,6 THEN EVERY 8 WEEKS
     Route: 042
     Dates: start: 20210415
  11. INFLECTRA [Suspect]
     Active Substance: INFLIXIMAB-DYYB
     Dosage: 5MG/KG AT WEEK 0,2,6 THEN EVERY 8 WEEKS
     Route: 042
     Dates: start: 20210610
  12. KADIAN [Concomitant]
     Active Substance: MORPHINE SULFATE
     Dosage: UNK
     Route: 065
  13. INFLECTRA [Suspect]
     Active Substance: INFLIXIMAB-DYYB
     Indication: EOSINOPHILIC COLITIS
     Dosage: UNK
     Route: 042
     Dates: start: 20200222
  14. PREDNISONE. [Concomitant]
     Active Substance: PREDNISONE
     Dosage: UNK, DAILY
     Route: 048
     Dates: start: 20200110
  15. INFLECTRA [Suspect]
     Active Substance: INFLIXIMAB-DYYB
     Dosage: UNK
     Route: 042
     Dates: start: 20200319
  16. APO CETIRIZINE [Concomitant]
     Active Substance: CETIRIZINE HYDROCHLORIDE
     Dosage: UNK
     Route: 065
  17. CALCIUM [Concomitant]
     Active Substance: CALCIUM
     Dosage: UNK
     Route: 048
  18. PANTOPRAZOLE [Concomitant]
     Active Substance: PANTOPRAZOLE
     Dosage: UNK
     Route: 065

REACTIONS (7)
  - Product use in unapproved indication [Unknown]
  - Off label use [Unknown]
  - Blood pressure fluctuation [Unknown]
  - Pyrexia [Unknown]
  - Productive cough [Unknown]
  - Pneumonia [Recovering/Resolving]
  - Blood pressure systolic increased [Not Recovered/Not Resolved]

NARRATIVE: CASE EVENT DATE: 20200222
